FAERS Safety Report 5419155-5 (Version None)
Quarter: 2007Q3

REPORT INFORMATION
  Report Type: 
  Country: None (occurrence: None)
  Receive Date: 20070816
  Receipt Date: 20070816
  Transmission Date: 20080115
  Serious: Yes (Life-Threatening, Disabling, Other)
  Sender: FDA-Public Use
  Company Number: None

PATIENT
  Age: 7 Year
  Sex: Female
  Weight: 24.4942 kg

DRUGS (2)
  1. PULMICORT FLEXHALER [Suspect]
     Indication: ASTHMA
     Dosage: 2 TO 6 TIMES PER DAY INHAL
     Route: 055
     Dates: start: 20070801, end: 20070813
  2. ALBUTEROL [Concomitant]

REACTIONS (10)
  - ABDOMINAL PAIN UPPER [None]
  - ANOREXIA [None]
  - CYANOSIS [None]
  - DYSPNOEA [None]
  - LETHARGY [None]
  - MEDICATION ERROR [None]
  - NECK PAIN [None]
  - PEAK EXPIRATORY FLOW RATE DECREASED [None]
  - PYREXIA [None]
  - THERAPEUTIC RESPONSE UNEXPECTED WITH DRUG SUBSTITUTION [None]
